FAERS Safety Report 8270391-2 (Version None)
Quarter: 2012Q2

REPORT INFORMATION
  Report Type: 
  Country: None (occurrence: None)
  Receive Date: 20120410
  Receipt Date: 20120404
  Transmission Date: 20120825
  Serious: No
  Sender: FDA-Public Use
  Company Number: US-BAYER-2012-034058

PATIENT
  Age: 55 Year
  Sex: Female
  Weight: 50 kg

DRUGS (5)
  1. NIACIN [Concomitant]
  2. CALCIUM CARBONATE [Concomitant]
  3. ALEVE (CAPLET) [Suspect]
     Indication: PAIN
     Dosage: 1, BID
     Route: 048
  4. MULTI-VITAMIN [Concomitant]
  5. FISH OIL [Concomitant]

REACTIONS (1)
  - PAIN [None]
